FAERS Safety Report 14509862 (Version 5)
Quarter: 2022Q4

REPORT INFORMATION
  Report Type: Spontaneous
  Country: US (occurrence: US)
  Receive Date: 20180209
  Receipt Date: 20221025
  Transmission Date: 20230112
  Serious: No
  Sender: FDA-Public Use
  Company Number: US-PFIZER INC-2018056457

PATIENT
  Age: 77 Year
  Sex: Female

DRUGS (13)
  1. METHOTREXATE SODIUM [Suspect]
     Active Substance: METHOTREXATE SODIUM
     Dosage: UNK
  2. ASPIRIN [Concomitant]
     Active Substance: ASPIRIN
     Dosage: UNK
     Route: 048
  3. HYDROXYCHLOROQUINE [Concomitant]
     Active Substance: HYDROXYCHLOROQUINE
     Dosage: 200 MG, TWICE A DAY
     Route: 048
     Dates: start: 20171017
  4. MIRTAZAPINE [Concomitant]
     Active Substance: MIRTAZAPINE
     Dosage: UNK
     Route: 048
     Dates: start: 20160521
  5. ONDANSETRON [Concomitant]
     Active Substance: ONDANSETRON
     Indication: Nausea
     Dosage: 4 MG, AS NEEDED (TAKE 1 TABLET THREE TIMES DAILY AS NEEDED FOR NAUSEA)
     Route: 048
     Dates: start: 20171106
  6. PRAVASTATIN [Concomitant]
     Active Substance: PRAVASTATIN
     Dosage: 20 MG, ONCE A DAY (AT BEDTIME)
     Route: 048
     Dates: start: 20170321
  7. PREDNISONE [Concomitant]
     Active Substance: PREDNISONE
     Dosage: 5 MG, TWICE A DAY
     Route: 048
     Dates: start: 20171017
  8. PROAIR HFA [Concomitant]
     Active Substance: ALBUTEROL SULFATE
     Dosage: UNK (90 MCG/ACTUATION INHALATION HFA AEROSOL INHALER)
     Dates: start: 20160523
  9. PROLIA [Concomitant]
     Active Substance: DENOSUMAB
     Dosage: UNK (60 MG/ML SUBCUTANEOUS SYRINGE; INSTRUCTIONS: INJECT 1 MILLILITER 60 MG)
     Route: 058
  10. HYDROCHLOROTHIAZIDE\TELMISARTAN [Concomitant]
     Active Substance: HYDROCHLOROTHIAZIDE\TELMISARTAN
     Dosage: 80 MG, ONCE A DAY
     Route: 048
  11. VITAMIN D2 [Concomitant]
     Active Substance: ERGOCALCIFEROL
     Dosage: 50000 IU, TAKE 1 CAPSULE BY MOUTH EVERY 14 DAYS
     Route: 048
     Dates: start: 20180123
  12. XANAX [Concomitant]
     Active Substance: ALPRAZOLAM
     Dosage: UNK
     Route: 048
  13. XELJANZ XR [Concomitant]
     Active Substance: TOFACITINIB CITRATE
     Dosage: 11 MG, DAILY
     Route: 048
     Dates: start: 20171221

REACTIONS (2)
  - Drug hypersensitivity [Unknown]
  - White blood cell count decreased [Unknown]
